FAERS Safety Report 13897633 (Version 1)
Quarter: 2017Q3

REPORT INFORMATION
  Report Type: Report from Study
  Country: IN (occurrence: IN)
  Receive Date: 20170823
  Receipt Date: 20170823
  Transmission Date: 20171127
  Serious: Yes (Death)
  Sender: FDA-Public Use
  Company Number: PHHY2017IN124236

PATIENT
  Sex: Female

DRUGS (1)
  1. CERTICAN [Suspect]
     Active Substance: EVEROLIMUS
     Indication: RENAL TRANSPLANT
     Dosage: 0.5 MG, UNK
     Route: 048
     Dates: start: 20160412

REACTIONS (1)
  - Death [Fatal]

NARRATIVE: CASE EVENT DATE: 20160429
